FAERS Safety Report 20826147 (Version 1)
Quarter: 2022Q2

REPORT INFORMATION
  Report Type: Spontaneous
  Country: CO (occurrence: CO)
  Receive Date: 20220513
  Receipt Date: 20220513
  Transmission Date: 20220721
  Serious: Yes (Hospitalization)
  Sender: FDA-Public Use
  Company Number: CO-PFIZER INC-202200669457

PATIENT
  Age: 55 Year
  Sex: Female

DRUGS (2)
  1. PALBOCICLIB [Suspect]
     Active Substance: PALBOCICLIB
     Dosage: UNK, CYCLIC
  2. LETROZOLE [Suspect]
     Active Substance: LETROZOLE
     Dosage: UNK, UNSPECIFIED FREQUENCY

REACTIONS (1)
  - Pancytopenia [Unknown]
